FAERS Safety Report 7301806-1 (Version None)
Quarter: 2011Q1

REPORT INFORMATION
  Report Type: 
  Country: None (occurrence: None)
  Receive Date: 20110218
  Receipt Date: 20110214
  Transmission Date: 20110831
  Serious: Yes (Other)
  Sender: FDA-Public Use
  Company Number: B0700191A

PATIENT
  Age: 35 Year
  Sex: Male

DRUGS (1)
  1. HEPTODIN [Suspect]
     Dosage: .1G PER DAY
     Route: 048
     Dates: start: 20110101

REACTIONS (1)
  - SPLENOMEGALY [None]
